FAERS Safety Report 11780603 (Version 5)
Quarter: 2016Q1

REPORT INFORMATION
  Report Type: Report from Study
  Country: US (occurrence: US)
  Receive Date: 20151126
  Receipt Date: 20160120
  Transmission Date: 20160525
  Serious: No
  Sender: FDA-Public Use
  Company Number: US-AMGEN-USASL2015123050

PATIENT
  Age: 51 Year
  Sex: Female

DRUGS (2)
  1. ENBREL [Suspect]
     Active Substance: ETANERCEPT
     Indication: PSORIATIC ARTHROPATHY
     Dosage: 50 MG, QWK
     Route: 065
     Dates: start: 20151112
  2. ENBREL [Suspect]
     Active Substance: ETANERCEPT
     Indication: PSORIATIC ARTHROPATHY

REACTIONS (14)
  - Arthralgia [Recovering/Resolving]
  - Injection site erythema [Recovering/Resolving]
  - Rash macular [Recovered/Resolved]
  - Inflammation [Recovering/Resolving]
  - Pain in extremity [Unknown]
  - Cough [Unknown]
  - Psoriasis [Unknown]
  - Insomnia [Unknown]
  - Rash [Unknown]
  - Erythema [Unknown]
  - Injection site pruritus [Unknown]
  - Back disorder [Unknown]
  - Back pain [Unknown]
  - Injection site reaction [Recovering/Resolving]

NARRATIVE: CASE EVENT DATE: 2015
